FAERS Safety Report 4921311-7 (Version None)
Quarter: 2006Q1

REPORT INFORMATION
  Report Type: 
  Country: None (occurrence: None)
  Receive Date: 20060224
  Receipt Date: 20060216
  Transmission Date: 20060701
  Serious: Yes (Hospitalization)
  Sender: FDA-Public Use
  Company Number: PHBS2006DE02834

PATIENT
  Weight: 2.4 kg

DRUGS (1)
  1. CLOZAPINE [Suspect]
     Route: 064

REACTIONS (28)
  - BLOOD BILIRUBIN INCREASED [None]
  - BLOOD THYROID STIMULATING HORMONE INCREASED [None]
  - BRACHYCEPHALY [None]
  - CAESAREAN SECTION [None]
  - CONDUCTIVE DEAFNESS [None]
  - CONGENITAL HYPOTHYROIDISM [None]
  - DISORDER OF ORBIT [None]
  - DRUG EXPOSURE DURING PREGNANCY [None]
  - DYSKINESIA [None]
  - EYELID DISORDER [None]
  - FACIAL DYSMORPHISM [None]
  - GOITRE [None]
  - HYPOTHERMIA [None]
  - HYPOTONIA NEONATAL [None]
  - LIP DISORDER [None]
  - MICROCEPHALY [None]
  - NASAL DISORDER [None]
  - NASAL SEPTUM DEVIATION [None]
  - NASAL SEPTUM DISORDER [None]
  - NECK DEFORMITY [None]
  - OLIGOHYDRAMNIOS [None]
  - POOR SUCKING REFLEX [None]
  - SMALL FOR DATES BABY [None]
  - SOMNOLENCE [None]
  - THYROXINE DECREASED [None]
  - THYROXINE FREE DECREASED [None]
  - TRI-IODOTHYRONINE DECREASED [None]
  - TRISOMY 21 [None]
